FAERS Safety Report 4618301-0 (Version None)
Quarter: 2005Q1

REPORT INFORMATION
  Report Type: 
  Country: None (occurrence: None)
  Receive Date: 20050324
  Receipt Date: 20050214
  Transmission Date: 20050727
  Serious: No
  Sender: FDA-Public Use
  Company Number: GBS050216607

PATIENT
  Age: 14 Year
  Sex: Male
  Weight: 46 kg

DRUGS (1)
  1. STRATTERA [Suspect]
     Indication: ATTENTION DEFICIT/HYPERACTIVITY DISORDER
     Dosage: 20 MG DAY
     Dates: start: 20041125, end: 20050211

REACTIONS (6)
  - ASPARTATE AMINOTRANSFERASE INCREASED [None]
  - BLOOD ALBUMIN INCREASED [None]
  - BLOOD BILIRUBIN INCREASED [None]
  - BLOOD TESTOSTERONE DECREASED [None]
  - BLOOD THYROID STIMULATING HORMONE DECREASED [None]
  - INSULIN-LIKE GROWTH FACTOR DECREASED [None]
